FAERS Safety Report 6127937-X (Version None)
Quarter: 2009Q1

REPORT INFORMATION
  Report Type: 
  Country: None (occurrence: None)
  Receive Date: 20090323
  Receipt Date: 20090310
  Transmission Date: 20090719
  Serious: Yes (Other)
  Sender: FDA-Public Use
  Company Number: US-ROCHE-548698

PATIENT
  Sex: Female
  Weight: 52.2 kg

DRUGS (5)
  1. ACCUTANE [Suspect]
     Indication: ACNE
     Dosage: ON 13 APRIL 1995, SHE WAS PRESCRIBED ORAL ACCUTANE 40 MG, 1 DAILY ALTERNATING WITH 1 TWICE DAILY
     Route: 048
     Dates: start: 19950413, end: 19950702
  2. ACCUTANE [Suspect]
     Dosage: ACCUTANE DECREASED TO 40 MG TABLET DAILY
     Route: 048
     Dates: start: 19950703, end: 19950901
  3. ACCUTANE [Suspect]
     Route: 048
     Dates: start: 19981020, end: 19990325
  4. DEMULEN-28 [Concomitant]
     Route: 048
     Dates: start: 19950413
  5. ORTHO TRI-CYCLEN [Concomitant]
     Route: 065

REACTIONS (23)
  - ACNE [None]
  - ANXIETY [None]
  - BLOOD TRIGLYCERIDES INCREASED [None]
  - BONE PAIN [None]
  - CHOLECYSTITIS CHRONIC [None]
  - COLITIS [None]
  - COLITIS ULCERATIVE [None]
  - CONDITION AGGRAVATED [None]
  - DEPRESSION [None]
  - DYSPEPSIA [None]
  - ECZEMA [None]
  - FOOT FRACTURE [None]
  - GALLBLADDER DISORDER [None]
  - GASTRITIS [None]
  - HERPES VIRUS INFECTION [None]
  - HYPERTENSION [None]
  - INFLAMMATORY BOWEL DISEASE [None]
  - LIP DRY [None]
  - PANCREATIC CYST [None]
  - PSORIASIS [None]
  - SINUS DISORDER [None]
  - SPLENIC CYST [None]
  - TONSILLECTOMY [None]
